FAERS Safety Report 6518278-7 (Version None)
Quarter: 2009Q4

REPORT INFORMATION
  Report Type: 
  Country: None (occurrence: None)
  Receive Date: 20091224
  Receipt Date: 20091218
  Transmission Date: 20100525
  Serious: Yes (Other)
  Sender: FDA-Public Use
  Company Number: US-B.I. PHARMACEUTICALS,INC./RIDGEFIELD-2009-BP-14618BP

PATIENT
  Age: 30 Year
  Sex: Female

DRUGS (3)
  1. VIRAMUNE [Suspect]
     Indication: ANTIVIRAL TREATMENT
     Dosage: 1200 MG
     Route: 048
     Dates: start: 20090304
  2. DIDANOSINE [Suspect]
     Indication: ANTIVIRAL TREATMENT
     Dosage: 250 MG
     Route: 048
     Dates: start: 20090304
  3. LAUVIA [Concomitant]
     Dosage: 1000 MG
     Dates: start: 20070912

REACTIONS (1)
  - ABORTION SPONTANEOUS [None]
